FAERS Safety Report 13707307 (Version 3)
Quarter: 2017Q4

REPORT INFORMATION
  Report Type: Spontaneous
  Country: IT (occurrence: IT)
  Receive Date: 20170630
  Receipt Date: 20171107
  Transmission Date: 20180320
  Serious: Yes (Other)
  Sender: FDA-Public Use
  Company Number: IT-SA-2017SA113768

PATIENT
  Age: 90 Year
  Sex: Male

DRUGS (25)
  1. LEXOTAN [Suspect]
     Active Substance: BROMAZEPAM
     Dosage: DOSE- 10 DROP
     Route: 048
  2. APIXABAN [Concomitant]
     Active Substance: APIXABAN
     Route: 065
  3. LANOXIN [Concomitant]
     Active Substance: DIGOXIN
     Dosage: 2 DOSE UNITS
     Route: 065
  4. LANSOX [Concomitant]
     Active Substance: LANSOPRAZOLE
     Dosage: 1 DOSE UNITS
     Route: 065
  5. APIDRA SOLOSTAR [Suspect]
     Active Substance: INSULIN GLULISINE
     Indication: DIABETES MELLITUS
     Dosage: DOSE:8 UNIT(S)
     Route: 058
  6. TAVOR (LORAZEPAM) [Suspect]
     Active Substance: LORAZEPAM
     Route: 048
  7. FINASTID [Concomitant]
     Dosage: 1 DOSE UNIT
     Route: 065
  8. ORAMORPH [Concomitant]
     Active Substance: MORPHINE SULFATE
     Dosage: 10MG/5ML ORAL SOLUTION- 20 CONCENTRATE MONODOSE 5ML
  9. SOLOSTAR [Suspect]
     Active Substance: DEVICE
     Indication: DIABETES MELLITUS
  10. SOLOSTAR [Suspect]
     Active Substance: DEVICE
     Indication: DIABETES MELLITUS
  11. KWIKPEN [Concomitant]
  12. KWIKPEN [Concomitant]
  13. LANSOPRAZOLE. [Concomitant]
     Active Substance: LANSOPRAZOLE
     Route: 065
  14. DELTACORTENE [Concomitant]
     Active Substance: PREDNISONE
     Route: 065
  15. TAPAZOLE [Concomitant]
     Active Substance: METHIMAZOLE
     Dosage: 0.5 DOSE UNITS
     Route: 065
  16. LEXOTAN [Suspect]
     Active Substance: BROMAZEPAM
     Dosage: DOSE- 15 DROP
     Route: 048
  17. DILATREND [Concomitant]
     Active Substance: CARVEDILOL
     Dosage: HALF TAB FOR 2
     Route: 065
  18. TALOFEN [Concomitant]
     Active Substance: PROMAZINE HYDROCHLORIDE
     Dosage: 4G/100ML ORAL DROPS SOLUTION VIAL 30ML
  19. ABASAGLAR [Suspect]
     Active Substance: INSULIN GLARGINE
     Indication: DIABETES MELLITUS
     Route: 058
  20. ABASAGLAR [Suspect]
     Active Substance: INSULIN GLARGINE
     Indication: DIABETES MELLITUS
     Route: 058
  21. LASIX [Concomitant]
     Active Substance: FUROSEMIDE
     Dosage: 1.5 DOSE UNITS
     Route: 065
  22. EUTIMIL [Concomitant]
     Active Substance: PAROXETINE HYDROCHLORIDE
     Dosage: 1 DOSE UNITS
     Route: 065
  23. APIDRA SOLOSTAR [Suspect]
     Active Substance: INSULIN GLULISINE
     Indication: DIABETES MELLITUS
     Dosage: 8+10+12
     Route: 058
  24. ELIQUIS [Concomitant]
     Active Substance: APIXABAN
     Dosage: 2 DOSE UNITS
     Route: 048
  25. ANEXATE [Concomitant]
     Active Substance: FLUMAZENIL
     Dosage: 1 FL IN 250 SF 50 CC/H
     Route: 065
     Dates: end: 20160909

REACTIONS (2)
  - Sopor [Recovering/Resolving]
  - Hypoglycaemia [Recovering/Resolving]

NARRATIVE: CASE EVENT DATE: 20160909
